FAERS Safety Report 19876985 (Version 1)
Quarter: 2021Q3

REPORT INFORMATION
  Report Type: Report from Study
  Country: ZA (occurrence: ZA)
  Receive Date: 20210924
  Receipt Date: 20210924
  Transmission Date: 20211014
  Serious: Yes (Hospitalization, Other)
  Sender: FDA-Public Use
  Company Number: ZA-SA-2019SA323643

PATIENT
  Age: 54 Year
  Sex: Female

DRUGS (2)
  1. TERIFLUNOMIDE. [Suspect]
     Active Substance: TERIFLUNOMIDE
     Indication: RELAPSING-REMITTING MULTIPLE SCLEROSIS
  2. TERIFLUNOMIDE. [Suspect]
     Active Substance: TERIFLUNOMIDE
     Indication: MULTIPLE SCLEROSIS
     Dosage: 14 MG, QD
     Route: 048
     Dates: start: 20191004, end: 202107

REACTIONS (27)
  - HER2 positive breast cancer [Unknown]
  - Pain [Recovering/Resolving]
  - Arthralgia [Recovering/Resolving]
  - Pain of skin [Recovering/Resolving]
  - Rash [Recovering/Resolving]
  - Hypoaesthesia [Recovering/Resolving]
  - Hormone receptor positive breast cancer [Unknown]
  - COVID-19 [Unknown]
  - SARS-CoV-2 test positive [Unknown]
  - Malaise [Unknown]
  - Blood oestrogen increased [Unknown]
  - Gastrointestinal pain [Unknown]
  - Intervertebral disc protrusion [Recovering/Resolving]
  - Alopecia [Recovering/Resolving]
  - Spinal cord compression [Recovering/Resolving]
  - Skin fissures [Unknown]
  - Cellulitis [Recovering/Resolving]
  - Erythema [Recovering/Resolving]
  - Gait disturbance [Unknown]
  - Diarrhoea [Recovering/Resolving]
  - Skin warm [Recovering/Resolving]
  - Skin swelling [Recovering/Resolving]
  - Spinal stenosis [Recovering/Resolving]
  - Abdominal discomfort [Unknown]
  - Balance disorder [Unknown]
  - Nerve injury [Unknown]
  - Nausea [Unknown]

NARRATIVE: CASE EVENT DATE: 2019
